FAERS Safety Report 14227517 (Version 1)
Quarter: 2017Q4

REPORT INFORMATION
  Report Type: Spontaneous
  Country: RU (occurrence: RU)
  Receive Date: 20171127
  Receipt Date: 20171127
  Transmission Date: 20180321
  Serious: Yes (Hospitalization, Other)
  Sender: FDA-Public Use
  Company Number: RU-BAYER-2017-221888

PATIENT
  Sex: Female

DRUGS (8)
  1. DOXORUBICIN [Concomitant]
     Active Substance: DOXORUBICIN
     Dosage: UNK
     Dates: start: 20151020
  2. LIPIODOL [Concomitant]
     Active Substance: ETHIODIZED OIL
     Dosage: UNK
     Dates: start: 20151020
  3. LIPIODOL [Concomitant]
     Active Substance: ETHIODIZED OIL
     Dosage: UNK
     Dates: start: 20160125
  4. NEXAVAR [Suspect]
     Active Substance: SORAFENIB
     Indication: HEPATOCELLULAR CARCINOMA
     Dosage: 400 MG, BID
     Dates: start: 20151111, end: 20151211
  5. NEXAVAR [Suspect]
     Active Substance: SORAFENIB
     Indication: HEPATOCELLULAR CARCINOMA
     Dosage: 400 MG, BID
     Dates: start: 20160629, end: 20160727
  6. NEXAVAR [Suspect]
     Active Substance: SORAFENIB
     Indication: HEPATOCELLULAR CARCINOMA
     Dosage: 400 MG, BID
     Dates: start: 20160325, end: 20160421
  7. NEXAVAR [Suspect]
     Active Substance: SORAFENIB
     Indication: HEPATOCELLULAR CARCINOMA
     Dosage: 400 MG, BID
     Route: 048
     Dates: start: 20150826, end: 20150925
  8. DOXORUBICIN [Concomitant]
     Active Substance: DOXORUBICIN
     Dosage: UNK
     Dates: start: 20160125

REACTIONS (5)
  - Lipogranuloma [None]
  - Hepatocellular carcinoma [None]
  - Tumour thrombosis [None]
  - Lymphadenopathy [None]
  - Lymphadenopathy [None]

NARRATIVE: CASE EVENT DATE: 20160513
